FAERS Safety Report 19565251 (Version 2)
Quarter: 2022Q1

REPORT INFORMATION
  Report Type: Spontaneous
  Country: CA (occurrence: CA)
  Receive Date: 20210714
  Receipt Date: 20220315
  Transmission Date: 20220423
  Serious: Yes (Hospitalization, Other)
  Sender: FDA-Public Use
  Company Number: CA-BRISTOL-MYERS SQUIBB COMPANY-BMS-2021-065750

PATIENT
  Age: 65 Year
  Sex: Male

DRUGS (40)
  1. ELOTUZUMAB [Suspect]
     Active Substance: ELOTUZUMAB
     Indication: Product used for unknown indication
     Dosage: 2064 MILLIGRAM FOR 5 YEARS
     Route: 041
  2. ELOTUZUMAB [Suspect]
     Active Substance: ELOTUZUMAB
     Dosage: 2064 MILLIGRAM
     Route: 041
  3. DEXAMETHASONE [Suspect]
     Active Substance: DEXAMETHASONE
     Indication: Product used for unknown indication
     Dosage: 8 MILLIGRAM FOR 5 YEARS
     Route: 048
  4. REVLIMID [Suspect]
     Active Substance: LENALIDOMIDE
     Indication: Product used for unknown indication
     Dosage: 15 MILLIGRAM FOR 5 YEARS
     Route: 048
  5. REVLIMID [Suspect]
     Active Substance: LENALIDOMIDE
     Dosage: 10 MILLIGRAM
     Route: 048
  6. DEXAMETHASONE [Suspect]
     Active Substance: DEXAMETHASONE
     Indication: COVID-19 pneumonia
     Dosage: 8 MILLIGRAM FOR 4 YEARS
     Route: 041
  7. DEXAMETHASONE [Suspect]
     Active Substance: DEXAMETHASONE
     Dosage: 6 MILLIGRAM FOR 4 YEARS
     Route: 041
  8. PERINDOPRIL ARGININE [Concomitant]
     Active Substance: PERINDOPRIL ARGININE
     Indication: Product used for unknown indication
     Dosage: THERAPY DURATION: 953 DAYS
     Route: 048
  9. PERINDOPRIL ARGININE [Concomitant]
     Active Substance: PERINDOPRIL ARGININE
     Dosage: THERAPY DURATION: 953 DAYS
     Route: 065
  10. ASPIRIN [Concomitant]
     Active Substance: ASPIRIN
     Indication: Product used for unknown indication
     Route: 065
  11. AZITHROMYCIN [Concomitant]
     Active Substance: AZITHROMYCIN
     Indication: COVID-19 pneumonia
     Dosage: UNK; FOR 3 DAYS
     Route: 065
  12. CEFTRIAXONE [Concomitant]
     Active Substance: CEFTRIAXONE
     Indication: Adverse event
     Route: 065
  13. CEFTRIAXONE [Concomitant]
     Active Substance: CEFTRIAXONE
     Indication: Adverse event
  14. DEXAMETHASONE [Concomitant]
     Active Substance: DEXAMETHASONE
     Indication: Adverse event
     Route: 065
  15. DOCUSATE [Concomitant]
     Active Substance: DOCUSATE
     Indication: Product used for unknown indication
     Route: 065
  16. FUSIDIC ACID [Concomitant]
     Active Substance: FUSIDIC ACID
     Indication: Adverse event
     Route: 065
  17. IMODIUM [Concomitant]
     Active Substance: LOPERAMIDE HYDROCHLORIDE
     Indication: Adverse event
     Route: 065
  18. K-DUR [Concomitant]
     Active Substance: POTASSIUM CHLORIDE
     Indication: Product used for unknown indication
     Dosage: UNK FOR 6 DAYS
     Route: 065
  19. K-DUR [Concomitant]
     Active Substance: POTASSIUM CHLORIDE
     Dosage: UNK FOR 4 DAYS
     Route: 065
  20. K-DUR [Concomitant]
     Active Substance: POTASSIUM CHLORIDE
     Dosage: UNK FOR 988 DAYS
     Route: 065
  21. LASIX [Concomitant]
     Active Substance: FUROSEMIDE
     Indication: Product used for unknown indication
     Route: 065
  22. LASIX [Concomitant]
     Active Substance: FUROSEMIDE
     Dosage: 7 YEARS
     Route: 065
  23. LASIX [Concomitant]
     Active Substance: FUROSEMIDE
     Dosage: 3 MONTHS
     Route: 065
  24. MAGNESIUM OXIDE [Concomitant]
     Active Substance: MAGNESIUM OXIDE
     Indication: Product used for unknown indication
     Dosage: FOR 4 YEARS
     Route: 065
  25. MAGNESIUM OXIDE [Concomitant]
     Active Substance: MAGNESIUM OXIDE
     Dosage: FOR 4 YEARS
     Route: 065
  26. METOPROLOL [Concomitant]
     Active Substance: METOPROLOL
     Indication: Product used for unknown indication
     Dosage: FOR 4 YEARS
     Route: 065
  27. METOPROLOL [Concomitant]
     Active Substance: METOPROLOL
     Dosage: FOR 4 YEARS
     Route: 065
  28. SODIUM CHLORIDE [Concomitant]
     Active Substance: SODIUM CHLORIDE
     Indication: Adverse event
     Dosage: FOR 4 DAYS
     Route: 065
  29. SODIUM CHLORIDE [Concomitant]
     Active Substance: SODIUM CHLORIDE
     Dosage: FOR 5 DAYS
     Route: 065
  30. PANTOPRAZOLE [Concomitant]
     Active Substance: PANTOPRAZOLE
     Indication: Product used for unknown indication
     Dosage: FOR 6 YEARS
     Route: 065
  31. PANTOPRAZOLE [Concomitant]
     Active Substance: PANTOPRAZOLE
     Dosage: FOR 6 YEARS
     Route: 065
  32. ACETAMINOPHEN\OXYCODONE HYDROCHLORIDE\OXYCODONE TEREPHTHALATE [Concomitant]
     Active Substance: ACETAMINOPHEN\OXYCODONE HYDROCHLORIDE\OXYCODONE TEREPHTHALATE
     Indication: Product used for unknown indication
     Dosage: FOR 5 YEARS
     Route: 065
  33. ACETAMINOPHEN\OXYCODONE HYDROCHLORIDE\OXYCODONE TEREPHTHALATE [Concomitant]
     Active Substance: ACETAMINOPHEN\OXYCODONE HYDROCHLORIDE\OXYCODONE TEREPHTHALATE
     Dosage: FOR 5 YEARS
     Route: 065
  34. PHOSPHATE NOVARTIS [Concomitant]
     Indication: Product used for unknown indication
     Dosage: UNK
     Route: 065
  35. PHOSPHATE NOVARTIS [Concomitant]
     Dosage: FOR 8 YEARS
     Route: 065
  36. PHOSPHATE NOVARTIS [Concomitant]
     Dosage: FOR 9 MONTHS
     Route: 065
  37. PIPERACILLIN SODIUM [Concomitant]
     Active Substance: PIPERACILLIN SODIUM
     Indication: Adverse event
     Dosage: FOR 4 DAYS
     Route: 065
  38. SENOKOT [Concomitant]
     Active Substance: SENNOSIDES
     Indication: Product used for unknown indication
     Route: 065
  39. VENTOLIN [Concomitant]
     Active Substance: ALBUTEROL SULFATE
     Indication: Adverse event
     Route: 065
  40. CHOLECALCIFEROL [Concomitant]
     Active Substance: CHOLECALCIFEROL
     Indication: Product used for unknown indication
     Route: 065

REACTIONS (2)
  - COVID-19 pneumonia [Recovered/Resolved]
  - Pyrexia [Recovered/Resolved]
